FAERS Safety Report 14132191 (Version 2)
Quarter: 2017Q4

REPORT INFORMATION
  Report Type: Spontaneous
  Country: GB (occurrence: GB)
  Receive Date: 20171027
  Receipt Date: 20171031
  Transmission Date: 20180321
  Serious: Yes (Hospitalization)
  Sender: FDA-Public Use
  Company Number: GB-AUROBINDO-AUR-APL-2017-42360

PATIENT
  Age: 30 Year
  Sex: Male

DRUGS (4)
  1. GENTAMICIN. [Suspect]
     Active Substance: GENTAMICIN
     Indication: STENOTROPHOMONAS INFECTION
     Route: 065
  2. LINEZOLID. [Suspect]
     Active Substance: LINEZOLID
     Indication: STENOTROPHOMONAS INFECTION
     Route: 065
  3. CIPROFLOXACIN. [Suspect]
     Active Substance: CIPROFLOXACIN
     Indication: STENOTROPHOMONAS INFECTION
     Route: 065
  4. SEPTRIN [Suspect]
     Active Substance: SULFAMETHOXAZOLE\TRIMETHOPRIM
     Indication: STENOTROPHOMONAS INFECTION
     Route: 065

REACTIONS (1)
  - Disease recurrence [Unknown]
